FAERS Safety Report 25341038 (Version 1)
Quarter: 2025Q2

REPORT INFORMATION
  Report Type: Spontaneous
  Country: GB (occurrence: GB)
  Receive Date: 20250521
  Receipt Date: 20250521
  Transmission Date: 20250716
  Serious: Yes (Other)
  Sender: BAXTER
  Company Number: GB-MHRA-MIDB-97646b75-3b14-4d6c-b053-879d46d80269

PATIENT
  Age: 24 Year

DRUGS (21)
  1. PROPOFOL [Suspect]
     Active Substance: PROPOFOL
     Route: 065
  2. ONDANSETRON [Suspect]
     Active Substance: ONDANSETRON
     Route: 065
  3. SODIUM CHLORIDE [Suspect]
     Active Substance: SODIUM CHLORIDE
     Route: 065
  4. ALBUTEROL [Concomitant]
     Active Substance: ALBUTEROL
     Route: 065
  5. METHOCARBAMOL [Concomitant]
     Active Substance: METHOCARBAMOL
     Route: 065
  6. ERYTHROMYCIN [Concomitant]
     Active Substance: ERYTHROMYCIN
     Route: 065
  7. BECLOMETHASONE\FORMOTEROL [Concomitant]
     Active Substance: BECLOMETHASONE\FORMOTEROL
     Route: 065
  8. SCOPOLAMINE [Concomitant]
     Active Substance: SCOPOLAMINE
  9. SOLIFENACIN [Concomitant]
     Active Substance: SOLIFENACIN
     Route: 065
  10. MIRABEGRON [Concomitant]
     Active Substance: MIRABEGRON
     Route: 065
  11. TIOTROPIUM [Concomitant]
     Active Substance: TIOTROPIUM
     Route: 065
  12. GABAPENTIN [Concomitant]
     Active Substance: GABAPENTIN
  13. CITALOPRAM [Concomitant]
     Active Substance: CITALOPRAM
     Route: 065
  14. TRAMADOL [Concomitant]
     Active Substance: TRAMADOL
     Route: 065
  15. SUMATRIPTAN [Concomitant]
     Active Substance: SUMATRIPTAN
     Route: 065
  16. CARBOCYSTEINE [Concomitant]
     Active Substance: CARBOCYSTEINE
     Route: 065
  17. FOLIC ACID [Concomitant]
     Active Substance: FOLIC ACID
     Route: 065
  18. MONTELUKAST [Concomitant]
     Active Substance: MONTELUKAST
     Route: 065
  19. DERMOL [Concomitant]
     Active Substance: BENZALKONIUM CHLORIDE\CHLORHEXIDINE HYDROCHLORIDE\ISOPROPYL MYRISTATE\PARAFFIN
     Route: 065
  20. METHOCARBAMOL [Concomitant]
     Active Substance: METHOCARBAMOL
     Route: 065
  21. IVABRADINE [Concomitant]
     Active Substance: IVABRADINE
     Route: 065

REACTIONS (2)
  - Muscular weakness [Unknown]
  - Extravasation [Unknown]
